FAERS Safety Report 20629466 (Version 17)
Quarter: 2024Q2

REPORT INFORMATION
  Report Type: Report from Study
  Country: FR (occurrence: FR)
  Receive Date: 20220323
  Receipt Date: 20240404
  Transmission Date: 20240716
  Serious: Yes (Hospitalization, Other)
  Sender: FDA-Public Use
  Company Number: FR-GILEAD-2022-0573658

PATIENT
  Age: 50 Year
  Sex: Female
  Weight: 114 kg

DRUGS (14)
  1. SACITUZUMAB GOVITECAN-HZIY [Suspect]
     Active Substance: SACITUZUMAB GOVITECAN-HZIY
     Indication: Triple negative breast cancer
     Dosage: 10 MG/KG CYCLE 1 DAY 1, CYCLE 1 DAY 8
     Route: 042
     Dates: start: 20220104, end: 20220111
  2. SACITUZUMAB GOVITECAN-HZIY [Suspect]
     Active Substance: SACITUZUMAB GOVITECAN-HZIY
     Dosage: 7.5 MG/KG, C2 D1-D8
     Route: 042
     Dates: start: 20220307, end: 20220314
  3. SACITUZUMAB GOVITECAN-HZIY [Suspect]
     Active Substance: SACITUZUMAB GOVITECAN-HZIY
     Dosage: 7.5 MG/KG C3D1 AND C1D8
     Route: 042
     Dates: start: 20220329, end: 20220405
  4. SACITUZUMAB GOVITECAN-HZIY [Suspect]
     Active Substance: SACITUZUMAB GOVITECAN-HZIY
     Dosage: 7.5 MG/KG ON C4D1 AND C4D8
     Route: 042
     Dates: start: 20220422, end: 20220429
  5. SACITUZUMAB GOVITECAN-HZIY [Suspect]
     Active Substance: SACITUZUMAB GOVITECAN-HZIY
     Dosage: 7.5 MG/KG, C5 D1-D8
     Route: 042
     Dates: start: 20220531, end: 20220607
  6. SACITUZUMAB GOVITECAN-HZIY [Suspect]
     Active Substance: SACITUZUMAB GOVITECAN-HZIY
     Dosage: 7.5 MG/KG, C6 D1-D8
     Route: 042
     Dates: start: 20220621, end: 20220628
  7. SACITUZUMAB GOVITECAN-HZIY [Suspect]
     Active Substance: SACITUZUMAB GOVITECAN-HZIY
     Dosage: 7.5 MG/KG, C7 D1-D8
     Route: 042
     Dates: start: 20220621, end: 20220719
  8. SACITUZUMAB GOVITECAN-HZIY [Suspect]
     Active Substance: SACITUZUMAB GOVITECAN-HZIY
     Dosage: 7.5 MG/KG, C8 D1-D8
     Route: 042
     Dates: start: 20220802, end: 20220809
  9. SACITUZUMAB GOVITECAN-HZIY [Suspect]
     Active Substance: SACITUZUMAB GOVITECAN-HZIY
     Dosage: 7.5 MG/KG, C9 D1-D8
     Route: 042
     Dates: start: 20220830, end: 20220906
  10. SACITUZUMAB GOVITECAN-HZIY [Suspect]
     Active Substance: SACITUZUMAB GOVITECAN-HZIY
     Dosage: 7.5 MG/KG
     Route: 042
     Dates: end: 20220920
  11. LEVOTHYROXINE [Concomitant]
     Active Substance: LEVOTHYROXINE\LEVOTHYROXINE SODIUM
  12. ESOMEPRAZOLE SODIUM [Concomitant]
     Active Substance: ESOMEPRAZOLE SODIUM
  13. TAHOR [Concomitant]
     Active Substance: ATORVASTATIN CALCIUM
  14. GRANULOCYTE COLONY-STIMULATING FACTOR NOS [Concomitant]
     Active Substance: GRANULOCYTE COLONY-STIMULATING FACTOR NOS

REACTIONS (6)
  - Gastrointestinal toxicity [Recovered/Resolved]
  - Oesophageal stenosis [Recovered/Resolved]
  - Diarrhoea [Recovered/Resolved]
  - COVID-19 [Unknown]
  - Intentional dose omission [Recovered/Resolved]
  - Intentional dose omission [Unknown]

NARRATIVE: CASE EVENT DATE: 20220112
